FAERS Safety Report 8047840-8 (Version None)
Quarter: 2012Q1

REPORT INFORMATION
  Report Type: 
  Country: None (occurrence: None)
  Receive Date: 20120116
  Receipt Date: 20120112
  Transmission Date: 20120608
  Serious: No
  Sender: FDA-Public Use
  Company Number: PHEH2012US001224

PATIENT
  Age: 94 Year
  Sex: Female

DRUGS (1)
  1. TASIGNA [Suspect]
     Indication: CHRONIC MYELOID LEUKAEMIA
     Dosage: 200MG DAILY ALTERNATING WITH 200 MG TWICE DAILY
     Route: 048
     Dates: start: 20101101

REACTIONS (1)
  - RASH [None]
